FAERS Safety Report 5528436-6 (Version None)
Quarter: 2007Q4

REPORT INFORMATION
  Report Type: 
  Country: None (occurrence: None)
  Receive Date: 20071128
  Receipt Date: 20071123
  Transmission Date: 20080405
  Serious: Yes (Disabling)
  Sender: FDA-Public Use
  Company Number: NL-BOEHRINGER INGELHEIM PHARMACEUTICALS, INC.-2007-DE-06934GD

PATIENT
  Sex: Male

DRUGS (4)
  1. NEVIRAPINE [Suspect]
     Indication: HIV INFECTION
  2. NEVIRAPINE [Suspect]
  3. DIDANOSINE [Suspect]
     Indication: HIV INFECTION
     Dosage: 250 MG (BODY WEIGHT LESS THAN 60 KG) OR 400 MG (BODY WEIGHT GREATER THAN 60 KG)
  4. LAMIVUDINE [Suspect]
     Indication: HIV INFECTION

REACTIONS (4)
  - HEMIPLEGIA [None]
  - PROGRESSIVE MULTIFOCAL LEUKOENCEPHALOPATHY [None]
  - SIGHT DISABILITY [None]
  - WHEELCHAIR USER [None]
